FAERS Safety Report 7736614-0 (Version None)
Quarter: 2011Q3

REPORT INFORMATION
  Report Type: 
  Country: None (occurrence: None)
  Receive Date: 20110902
  Receipt Date: 20110830
  Transmission Date: 20111222
  Serious: Yes (Hospitalization)
  Sender: FDA-Public Use
  Company Number: HCTZ-11-07

PATIENT
  Age: 53 Year
  Sex: Male

DRUGS (1)
  1. HYDROCHLOROTHIAZIDE [Suspect]
     Indication: HYPERTENSION
     Dosage: 25MG/DAY

REACTIONS (4)
  - METAMORPHOPSIA [None]
  - VISUAL ACUITY REDUCED [None]
  - RETINAL OEDEMA [None]
  - VISION BLURRED [None]
